FAERS Safety Report 4666554-5 (Version None)
Quarter: 2005Q2

REPORT INFORMATION
  Report Type: 
  Country: None (occurrence: None)
  Receive Date: 20050517
  Receipt Date: 20050503
  Transmission Date: 20051028
  Serious: Yes (Other)
  Sender: FDA-Public Use
  Company Number: USA040669395

PATIENT
  Age: 81 Year
  Sex: Female
  Weight: 66 kg

DRUGS (18)
  1. FORTEO [Suspect]
     Indication: OSTEOPOROSIS
     Dosage: 20 UG/1 DAY
     Dates: start: 20040504
  2. ACTONEL [Concomitant]
  3. AMBIEN [Concomitant]
  4. ATROVENT [Concomitant]
  5. HYDROCHLOROTHIAZIDE W/IRBESARTAN [Concomitant]
  6. CELEBREX [Concomitant]
  7. LAMISIL [Concomitant]
  8. LISINOPRIL [Concomitant]
  9. METOPROLOL SUCCINATE [Concomitant]
  10. HYDROCHLOROTHIAZIDE [Concomitant]
  11. CALCIUM GLUCONATE [Concomitant]
  12. ENTERIC ASPIRIN (ACETYLSALICYLIC ACID) [Concomitant]
  13. FERROUS SULFATE TAB [Concomitant]
  14. GLUCOSAMINE [Concomitant]
  15. SPECTRAVITE (THERAGRAN) [Concomitant]
  16. VIT C TAB [Concomitant]
  17. VITAMIN D [Concomitant]
  18. VITAMIN E [Concomitant]

REACTIONS (10)
  - CEREBRAL ATROPHY [None]
  - CEREBRAL ISCHAEMIA [None]
  - MUSCLE SPASMS [None]
  - OPTIC ISCHAEMIC NEUROPATHY [None]
  - OPTIC NEURITIS [None]
  - PAPILLOEDEMA [None]
  - RETINAL HAEMORRHAGE [None]
  - RETINAL VEIN OCCLUSION [None]
  - VITREOUS DETACHMENT [None]
  - VITREOUS HAEMORRHAGE [None]
